FAERS Safety Report 17900053 (Version 1)
Quarter: 2020Q2

REPORT INFORMATION
  Report Type: Spontaneous
  Country: US (occurrence: US)
  Receive Date: 20200615
  Receipt Date: 20200615
  Transmission Date: 20200714
  Serious: No
  Sender: FDA-Public Use
  Company Number: None

PATIENT
  Age: 30 Year
  Sex: Male
  Weight: 90 kg

DRUGS (1)
  1. EQUATE COOL AND HEAT PAIN RELIEVING LIQUID [Suspect]
     Active Substance: MENTHOL
     Indication: BACK PAIN
     Dates: start: 20200615, end: 20200615

REACTIONS (4)
  - Application site erosion [None]
  - Application site erythema [None]
  - Back pain [None]
  - Application site irritation [None]

NARRATIVE: CASE EVENT DATE: 20200615
